FAERS Safety Report 7304284-1 (Version None)
Quarter: 2011Q1

REPORT INFORMATION
  Report Type: 
  Country: None (occurrence: None)
  Receive Date: 20110221
  Receipt Date: 20101228
  Transmission Date: 20110831
  Serious: Yes (Hospitalization)
  Sender: FDA-Public Use
  Company Number: US-BAYER-201024511NA

PATIENT
  Sex: Female

DRUGS (15)
  1. CELEXA [Concomitant]
  2. TOPAMAX [Concomitant]
     Indication: MIGRAINE
     Dates: start: 20050101, end: 20080615
  3. ALIMENTARY TRACT AND METABOLISM [Concomitant]
  4. WELLBUTRIN [Concomitant]
     Indication: ANXIETY
     Dates: start: 20050101, end: 20080615
  5. PHENERGAN [Concomitant]
  6. PEPCID [Concomitant]
  7. DEPAKOTE [Concomitant]
     Indication: MIGRAINE
     Dates: start: 20050101, end: 20080615
  8. PERCOCET [Concomitant]
  9. OXYCET [Concomitant]
  10. YASMIN [Suspect]
     Indication: CONTRACEPTION
     Route: 048
     Dates: start: 20060101, end: 20091115
  11. NEXIUM [Concomitant]
  12. IBUPROFEN [Concomitant]
  13. ELMIRON [Concomitant]
     Indication: CYSTITIS INTERSTITIAL
     Dates: start: 20020101
  14. UNCODEABLE ^UNCLASSIFIABLE^ [Concomitant]
  15. PRILOSEC [Concomitant]

REACTIONS (5)
  - NAUSEA [None]
  - ABDOMINAL PAIN UPPER [None]
  - VOMITING [None]
  - BILIARY DYSKINESIA [None]
  - CHOLECYSTITIS CHRONIC [None]
